FAERS Safety Report 13356482 (Version 4)
Quarter: 2017Q2

REPORT INFORMATION
  Report Type: Spontaneous
  Country: JP (occurrence: JP)
  Receive Date: 20170321
  Receipt Date: 20170530
  Transmission Date: 20170830
  Serious: Yes (Hospitalization, Other)
  Sender: FDA-Public Use
  Company Number: JP-GILEAD-2017-0262259AA

PATIENT
  Age: 66 Year
  Sex: Female
  Weight: 76.1 kg

DRUGS (7)
  1. URSO [Concomitant]
     Active Substance: URSODIOL
     Dosage: 600 MG, QD
     Route: 048
     Dates: start: 20120611
  2. CAMOSTAT MESILATE [Concomitant]
     Active Substance: CAMOSTAT MESYLATE
     Indication: PANCREATITIS ACUTE
     Dosage: 600 MG, QD
     Route: 048
     Dates: start: 20140304
  3. HUMALOG MIX [Concomitant]
     Active Substance: INSULIN LISPRO
     Indication: DIABETES MELLITUS
     Dosage: 14 (IN THE MORNIG), 14 (IN THE AFTERNOON), 16 (IN THE EVENING), 0 (BEFORE SLEEPING)
     Route: 058
     Dates: start: 20120919
  4. PROTECARDIN [Concomitant]
     Dosage: 20 MG, QD
     Route: 048
     Dates: start: 20140304, end: 20170301
  5. LIPACREON [Concomitant]
     Active Substance: PANCRELIPASE
     Indication: PANCREATITIS ACUTE
     Dosage: 900 MG, QD
     Route: 048
     Dates: start: 20140304
  6. METGLUCO [Concomitant]
     Active Substance: METFORMIN HYDROCHLORIDE
     Indication: DIABETES MELLITUS
     Dosage: 2000 MG, QD
     Route: 048
     Dates: start: 20110629
  7. HARVONI [Suspect]
     Active Substance: LEDIPASVIR\SOFOSBUVIR
     Indication: CHRONIC HEPATITIS C
     Dosage: UNK
     Route: 048
     Dates: start: 20170301

REACTIONS (1)
  - Pancreatitis acute [Recovered/Resolved]

NARRATIVE: CASE EVENT DATE: 20170304
